FAERS Safety Report 12880547 (Version 1)
Quarter: 2016Q4

REPORT INFORMATION
  Report Type: Spontaneous
  Country: GB (occurrence: GB)
  Receive Date: 20161025
  Receipt Date: 20161025
  Transmission Date: 20170207
  Serious: Yes (Other)
  Sender: FDA-Public Use
  Company Number: GB-PFIZER INC-2630643

PATIENT
  Age: 48 Year
  Sex: Male

DRUGS (1)
  1. METHOTREXATE SODIUM. [Suspect]
     Active Substance: METHOTREXATE SODIUM
     Dosage: 15 MG, ONE DOSE WEEKLY
     Route: 048

REACTIONS (5)
  - Muscular weakness [Unknown]
  - Sensory disturbance [Unknown]
  - Small fibre neuropathy [Unknown]
  - Myositis [Unknown]
  - Blood creatine phosphokinase increased [Unknown]
